FAERS Safety Report 9338804 (Version 1)
Quarter: 2013Q2

REPORT INFORMATION
  Report Type: Spontaneous
  Country: US (occurrence: None)
  Receive Date: 20130605
  Receipt Date: 20130605
  Transmission Date: 20140414
  Serious: Yes (Disabling)
  Sender: FDA-Public Use
  Company Number: None

PATIENT
  Age: 57 Year
  Sex: Female
  Weight: 99.79 kg

DRUGS (1)
  1. LEVOFLOXACIN [Suspect]
     Indication: BRONCHITIS
     Dosage: ONE DAILY
     Route: 048
     Dates: start: 20121115, end: 20121122

REACTIONS (4)
  - Tendon pain [None]
  - Myalgia [None]
  - Grip strength decreased [None]
  - Musculoskeletal disorder [None]
